FAERS Safety Report 13989434 (Version 1)
Quarter: 2017Q3

REPORT INFORMATION
  Report Type: Spontaneous
  Country: GB (occurrence: GB)
  Receive Date: 20170920
  Receipt Date: 20170920
  Transmission Date: 20171128
  Serious: Yes (Hospitalization)
  Sender: FDA-Public Use
  Company Number: GB-TEVA-806575ACC

PATIENT
  Age: 61 Year

DRUGS (9)
  1. PARACETAMOL [Concomitant]
     Active Substance: ACETAMINOPHEN
     Dosage: FOUR TIMES A DAY
  2. ADCAL-D3 [Concomitant]
     Active Substance: CALCIUM CARBONATE\CHOLECALCIFEROL
     Dosage: 2 DOSAGE FORMS DAILY; 750MG/200UNIT CAPLETS 2 CAPLETS DAILY
  3. RIFAMPICIN [Suspect]
     Active Substance: RIFAMPIN
     Indication: PELVIC INFECTION
  4. BISOPROLOL [Concomitant]
     Active Substance: BISOPROLOL
     Dosage: 2.5 MILLIGRAM DAILY;
  5. CREATINE [Concomitant]
     Active Substance: CREATINE
  6. OMEPRAZOLE. [Concomitant]
     Active Substance: OMEPRAZOLE
     Dosage: 40 MILLIGRAM DAILY;
  7. EZETIMIBE. [Suspect]
     Active Substance: EZETIMIBE
     Indication: PELVIC INFECTION
     Dosage: 10 MILLIGRAM DAILY;
  8. ASPIRIN. [Concomitant]
     Active Substance: ASPIRIN
     Dosage: 75 MILLIGRAM DAILY;
  9. FOLIC ACID. [Concomitant]
     Active Substance: FOLIC ACID
     Dosage: 5 MILLIGRAM DAILY; PRESCRIBED BY HOSPITAL

REACTIONS (5)
  - Vomiting [Unknown]
  - Rash maculo-papular [Unknown]
  - Rhabdomyolysis [Unknown]
  - Nausea [Unknown]
  - Tubulointerstitial nephritis [Unknown]
